FAERS Safety Report 7970483-9 (Version None)
Quarter: 2011Q4

REPORT INFORMATION
  Report Type: 
  Country: None (occurrence: None)
  Receive Date: 20111212
  Receipt Date: 20111202
  Transmission Date: 20120403
  Serious: Yes (Life-Threatening)
  Sender: FDA-Public Use
  Company Number: FR-TEVA-306506ISR

PATIENT
  Sex: Male

DRUGS (5)
  1. CITALOPRAM [Suspect]
     Route: 048
  2. CRESTOR [Concomitant]
     Dosage: 1 DOSAGE FORMS;
     Route: 048
  3. AZILECT [Suspect]
     Indication: PARKINSON'S DISEASE
     Route: 048
     Dates: start: 20100824
  4. ESCITALOPRAM OXALATE [Concomitant]
     Indication: DEPRESSION
     Dosage: 1 DOSAGE FORMS;
     Route: 048
     Dates: start: 20100201
  5. IRBESARTAN [Concomitant]
     Dosage: 2 DOSAGE FORMS;
     Route: 048

REACTIONS (1)
  - SUICIDE ATTEMPT [None]
